FAERS Safety Report 4980345-7 (Version None)
Quarter: 2006Q2

REPORT INFORMATION
  Report Type: 
  Country: None (occurrence: None)
  Receive Date: 20060418
  Receipt Date: 20060412
  Transmission Date: 20061013
  Serious: Yes (Hospitalization, Other)
  Sender: FDA-Public Use
  Company Number: 2005147732

PATIENT
  Age: 69 Year
  Sex: Male
  Weight: 65.7716 kg

DRUGS (8)
  1. LIPITOR [Suspect]
     Indication: BLOOD CHOLESTEROL ABNORMAL
     Dosage: 20 MG (20 MG, 1 IN 1 D), ORAL
     Route: 048
     Dates: start: 20040201, end: 20050101
  2. COREG [Concomitant]
  3. ECOTRIN (ACETYLSALICYLIC ACID) [Concomitant]
  4. XANAX [Concomitant]
  5. ISOSORBIDE MONONITRATE [Concomitant]
  6. BUMEX [Concomitant]
  7. COUDAMINE (WARFARIN SODIUM) [Concomitant]
  8. ALTACE [Concomitant]

REACTIONS (11)
  - ABDOMINAL PAIN UPPER [None]
  - BLOOD GLUCOSE INCREASED [None]
  - CARDIAC OPERATION [None]
  - GALLBLADDER NON-FUNCTIONING [None]
  - GASTRITIS [None]
  - HEPATIC FAILURE [None]
  - HEPATITIS [None]
  - HIATUS HERNIA [None]
  - HYPERTENSION [None]
  - MYOGLOBIN BLOOD INCREASED [None]
  - NAUSEA [None]
